FAERS Safety Report 8793341 (Version 1)
Quarter: 2012Q4

REPORT INFORMATION
  Report Type: 
  Country: GB (occurrence: GB)
  Receive Date: 20120917
  Receipt Date: 20120917
  Transmission Date: 20130627
  Serious: Yes (Other)
  Sender: FDA-Public Use
  Company Number: GB-ALLERGAN-1211276US

PATIENT
  Age: 71 Year
  Sex: Female

DRUGS (1)
  1. LUMIGAN [Suspect]
     Indication: OCULAR HYPERTENSION
     Dosage: 2 Gtt, qpm
     Route: 047
     Dates: start: 20081120, end: 20090611

REACTIONS (6)
  - Blindness unilateral [Not Recovered/Not Resolved]
  - Corneal opacity [Not Recovered/Not Resolved]
  - Corneal epithelium defect [Not Recovered/Not Resolved]
  - Corneal scar [Not Recovered/Not Resolved]
  - Irritability [Not Recovered/Not Resolved]
  - Eye pain [Not Recovered/Not Resolved]
